FAERS Safety Report 5691773-9 (Version None)
Quarter: 2008Q2

REPORT INFORMATION
  Report Type: 
  Country: None (occurrence: None)
  Receive Date: 20080401
  Receipt Date: 20080401
  Transmission Date: 20081010
  Serious: Yes (Other)
  Sender: FDA-Public Use
  Company Number: None

PATIENT
  Age: 54 Year
  Sex: Male
  Weight: 75.7507 kg

DRUGS (1)
  1. NASONEX [Suspect]
     Indication: NASAL POLYPS
     Dosage: TWO SPRAYS TO EACH NOSTRIL ONE DAILY NASAL
     Route: 045
     Dates: start: 20060918, end: 20080329

REACTIONS (5)
  - ANXIETY [None]
  - DEPRESSION [None]
  - MIDDLE INSOMNIA [None]
  - PANIC ATTACK [None]
  - SUICIDAL IDEATION [None]
